FAERS Safety Report 4402891-7 (Version None)
Quarter: 2004Q3

REPORT INFORMATION
  Report Type: 
  Country: None (occurrence: None)
  Receive Date: 20040716
  Receipt Date: 20040708
  Transmission Date: 20050211
  Serious: Yes (Hospitalization)
  Sender: FDA-Public Use
  Company Number: 207392

PATIENT
  Age: 36 Year
  Sex: Female
  Weight: 80.7 kg

DRUGS (18)
  1. XOLAIR [Suspect]
     Indication: ASTHMA
     Dosage: 150 MG, Q2W, SUBCUTANEOUS
     Route: 058
     Dates: start: 20040505, end: 20040603
  2. CLARINEX [Concomitant]
  3. XOPENEX [Concomitant]
  4. PULMICORT [Concomitant]
  5. PREVACID [Concomitant]
  6. ALLFEN-DM(DEXTROMETHORPHAN HYDROBROMIDE, GUAIFENESIN) [Concomitant]
  7. CALAN (VERAPAMIL HYDROCHLORIDE0 [Concomitant]
  8. ADVAIR (SALMETEROL XINAFOATE, FLLUTICASONE PROPIONATE) [Concomitant]
  9. SINGULAIR (MONTELUKASTS SODIUM) [Concomitant]
  10. SURFAK (DOCUSATE CALCIUM) [Concomitant]
  11. METAMUCIL (PSYLLIUM HUSK) [Concomitant]
  12. HYDROXYZINE [Concomitant]
  13. SYNTHROID [Concomitant]
  14. ZONEGRAN [Concomitant]
  15. FOLIC ACID [Concomitant]
  16. B6 (PYRIDOXINE HYDROCHLORIDE) [Concomitant]
  17. RHINOCORT [Concomitant]
  18. COMBIVENT INHALER (ALBUTEROL, ALBUTEROL SULFATE, IPRATROPIUM BROMIDE) [Concomitant]

REACTIONS (10)
  - ASTHMA [None]
  - CHEILITIS [None]
  - CHEST DISCOMFORT [None]
  - CONDITION AGGRAVATED [None]
  - COUGH [None]
  - DRUG HYPERSENSITIVITY [None]
  - PARAESTHESIA ORAL [None]
  - PRURITUS [None]
  - SINUS PAIN [None]
  - URTICARIA [None]
